FAERS Safety Report 10506294 (Version 2)
Quarter: 2015Q1

REPORT INFORMATION
  Report Type: Spontaneous
  Country: SE (occurrence: US)
  Receive Date: 20141009
  Receipt Date: 20150119
  Transmission Date: 20150720
  Serious: Yes (Other)
  Sender: FDA-Public Use
  Company Number: SE-009507513-1410SWE003431

PATIENT
  Sex: Male

DRUGS (2)
  1. PROPECIA [Suspect]
     Active Substance: FINASTERIDE
     Dosage: 1 MG DAILY
     Route: 048
  2. ACETAMINOPHEN (+) PSEUDOEPHEDRINE HYDROCHLORIDE [Interacting]
     Active Substance: ACETAMINOPHEN\PSEUDOEPHEDRINE HYDROCHLORIDE

REACTIONS (2)
  - Seizure [Unknown]
  - Drug interaction [Unknown]
